FAERS Safety Report 13748574 (Version 3)
Quarter: 2021Q3

REPORT INFORMATION
  Report Type: Report from Study
  Country: CA (occurrence: CA)
  Receive Date: 20170713
  Receipt Date: 20210922
  Transmission Date: 20211014
  Serious: Yes (Other)
  Sender: FDA-Public Use
  Company Number: PHHY2017CA082744

PATIENT
  Age: 27 Year
  Sex: Female
  Weight: 38.55 kg

DRUGS (13)
  1. ILARIS [Suspect]
     Active Substance: CANAKINUMAB
     Dosage: UNK
     Route: 065
     Dates: start: 20170707
  2. ILARIS [Suspect]
     Active Substance: CANAKINUMAB
     Dosage: UNK
     Route: 065
     Dates: start: 20171220
  3. ILARIS [Suspect]
     Active Substance: CANAKINUMAB
     Dosage: UNK
     Route: 065
     Dates: start: 20170609
  4. ILARIS [Suspect]
     Active Substance: CANAKINUMAB
     Dosage: 300 MG, Q4W
     Route: 058
     Dates: start: 20190828
  5. ILARIS [Suspect]
     Active Substance: CANAKINUMAB
     Dosage: 300 MG, Q4W
     Route: 058
     Dates: start: 20200514
  6. ILARIS [Suspect]
     Active Substance: CANAKINUMAB
     Dosage: 300 MG, Q4W
     Route: 058
     Dates: start: 20190731
  7. ILARIS [Suspect]
     Active Substance: CANAKINUMAB
     Dosage: UNK
     Route: 065
     Dates: start: 20170929
  8. ILARIS [Suspect]
     Active Substance: CANAKINUMAB
     Dosage: 300 MG, Q4W
     Route: 058
     Dates: start: 20200319
  9. ILARIS [Suspect]
     Active Substance: CANAKINUMAB
     Dosage: UNK
     Route: 065
     Dates: start: 20170503
  10. ILARIS [Suspect]
     Active Substance: CANAKINUMAB
     Dosage: UNK
     Route: 065
     Dates: start: 20171124
  11. ILARIS [Suspect]
     Active Substance: CANAKINUMAB
     Indication: FAMILIAL MEDITERRANEAN FEVER
     Dosage: 300 MG, Q4W
     Route: 058
     Dates: start: 20170308
  12. ILARIS [Suspect]
     Active Substance: CANAKINUMAB
     Dosage: UNK
     Route: 065
     Dates: start: 20170804
  13. ILARIS [Suspect]
     Active Substance: CANAKINUMAB
     Dosage: 300 MG, Q4W
     Route: 058
     Dates: start: 20180215

REACTIONS (30)
  - Mobility decreased [Unknown]
  - Neuropathy peripheral [Unknown]
  - Fatigue [Not Recovered/Not Resolved]
  - Arthralgia [Unknown]
  - Heart rate increased [Recovering/Resolving]
  - Vomiting [Unknown]
  - Skin irritation [Unknown]
  - Pyrexia [Unknown]
  - Blood pressure increased [Unknown]
  - Ovarian cyst [Unknown]
  - Product availability issue [Unknown]
  - Pain [Unknown]
  - Myalgia [Unknown]
  - Therapeutic product effect incomplete [Unknown]
  - Condition aggravated [Unknown]
  - Blood pressure decreased [Unknown]
  - Volume blood decreased [Unknown]
  - Ehlers-Danlos syndrome [Unknown]
  - Headache [Unknown]
  - Malaise [Unknown]
  - Sensitivity to weather change [Unknown]
  - Weight abnormal [Unknown]
  - Diarrhoea [Unknown]
  - Vasoconstriction [Unknown]
  - Eye irritation [Unknown]
  - Arthritis [Recovering/Resolving]
  - Nausea [Unknown]
  - Product use complaint [Unknown]
  - Familial mediterranean fever [Unknown]
  - Abdominal discomfort [Unknown]

NARRATIVE: CASE EVENT DATE: 20170707
